FAERS Safety Report 22311202 (Version 1)
Quarter: 2023Q2

REPORT INFORMATION
  Report Type: Spontaneous
  Country: US (occurrence: US)
  Receive Date: 20230511
  Receipt Date: 20230511
  Transmission Date: 20230721
  Serious: No
  Sender: FDA-Public Use
  Company Number: US-BRISTOL-MYERS SQUIBB COMPANY-2023-065645

PATIENT
  Age: 65 Year
  Sex: Female

DRUGS (20)
  1. ELIQUIS [Suspect]
     Active Substance: APIXABAN
     Indication: Cerebrovascular accident prophylaxis
     Dosage: 5 MG, 2X/DAY
     Route: 048
     Dates: start: 20230505
  2. METOPROLOL TARTRATE [Suspect]
     Active Substance: METOPROLOL TARTRATE
     Dosage: UNK UNK, 2X/DAY
     Dates: start: 20230505
  3. PROGESTERONE [Concomitant]
     Active Substance: PROGESTERONE
     Dosage: 200 MG
  4. LEVOTHYROXINE [Concomitant]
     Active Substance: LEVOTHYROXINE
     Dosage: 62.2 UG
  5. LITHIUM [Concomitant]
     Active Substance: LITHIUM
     Dosage: UNK
  6. VITAMIN B [Concomitant]
     Active Substance: VITAMIN B
     Dosage: UNK
  7. VITAMIN C [Concomitant]
     Active Substance: ASCORBIC ACID
     Dosage: UNK
  8. VITAMIN E [Concomitant]
     Active Substance: .ALPHA.-TOCOPHEROL
     Dosage: UNK
  9. CHOLECALCIFEROL [Concomitant]
     Active Substance: CHOLECALCIFEROL
     Dosage: UNK
  10. FISH OIL [Concomitant]
     Active Substance: FISH OIL
     Dosage: UNK
  11. PROBIOTIC [BIFIDOBACTERIUM INFANTIS;LACTOBACILLUS ACIDOPHILUS] [Concomitant]
     Dosage: UNK
  12. BERBERINE [Concomitant]
     Active Substance: BERBERINE
     Dosage: UNK
  13. APPLE CIDER VINEGAR [Concomitant]
     Active Substance: APPLE CIDER VINEGAR
     Dosage: UNK
  14. COLLAGEN [Concomitant]
     Active Substance: COLLAGEN
     Dosage: UNK
  15. NIACIN [Concomitant]
     Active Substance: NIACIN
     Dosage: UNK
  16. MAGNESIUM [Concomitant]
     Active Substance: MAGNESIUM
     Dosage: UNK
  17. CALCIUM [Concomitant]
     Active Substance: CALCIUM
     Dosage: UNK
  18. DIETARY SUPPLEMENT [Concomitant]
     Active Substance: DIETARY SUPPLEMENT
     Dosage: UNK
  19. OLIVE LEAVES [Concomitant]
     Dosage: UNK
  20. VITAMINS [Concomitant]
     Active Substance: VITAMINS
     Dosage: UNK

REACTIONS (1)
  - Peripheral coldness [Unknown]
